FAERS Safety Report 5312462-6 (Version None)
Quarter: 2007Q2

REPORT INFORMATION
  Report Type: 
  Country: None (occurrence: None)
  Receive Date: 20070430
  Receipt Date: 20061212
  Transmission Date: 20071010
  Serious: No
  Sender: FDA-Public Use
  Company Number: 2006UW27116

PATIENT
  Age: 61 Year
  Sex: Male
  Weight: 83 kg

DRUGS (14)
  1. NEXIUM [Suspect]
     Indication: PROPHYLAXIS
     Route: 048
     Dates: start: 20060601
  2. ZETIA [Concomitant]
  3. BACTRIM [Concomitant]
     Dosage: ONE TABLET
  4. LABETALOL HCL [Concomitant]
  5. LIPITOR [Concomitant]
  6. ALTACE [Concomitant]
  7. FOLTX [Concomitant]
  8. COLCHICINE [Concomitant]
  9. CALCITRIOL [Concomitant]
  10. CELLCEPT [Concomitant]
  11. PREDNISONE TAB [Concomitant]
  12. SODIUM BICARB [Concomitant]
  13. MAALOX FAST BLOCKER [Concomitant]
  14. ASPIRIN [Concomitant]

REACTIONS (2)
  - BLOOD GLUCOSE INCREASED [None]
  - BLOOD PRESSURE INCREASED [None]
